FAERS Safety Report 21446125 (Version 1)
Quarter: 2022Q4

REPORT INFORMATION
  Report Type: Spontaneous
  Country: US (occurrence: None)
  Receive Date: 20221011
  Receipt Date: 20221011
  Transmission Date: 20230113
  Serious: Yes (Other)
  Sender: FDA-Public Use
  Company Number: None

PATIENT
  Age: 33 Year
  Sex: Male

DRUGS (2)
  1. CEFAZOLIN [Suspect]
     Active Substance: CEFAZOLIN
     Indication: Sepsis
     Dosage: FREQUENCY : 3 TIMES A DAY;?
     Route: 042
     Dates: start: 20221003, end: 20221007
  2. CEFAZOLIN [Suspect]
     Active Substance: CEFAZOLIN
     Indication: Sepsis
     Dosage: FREQUENCY : 3 TIMES A DAY;?
     Route: 042
     Dates: start: 20221003, end: 20221007

REACTIONS (2)
  - Drug hypersensitivity [None]
  - Type IV hypersensitivity reaction [None]

NARRATIVE: CASE EVENT DATE: 20221007
